FAERS Safety Report 8908917 (Version 2)
Quarter: 2013Q2

REPORT INFORMATION
  Report Type: Spontaneous
  Country: US (occurrence: US)
  Receive Date: 20121114
  Receipt Date: 20130525
  Transmission Date: 20140414
  Serious: No
  Sender: FDA-Public Use
  Company Number: US-ASTRAZENECA-2012SE83830

PATIENT
  Age: 50 Year
  Sex: Male
  Weight: 127 kg

DRUGS (1)
  1. SEROQUEL XR [Suspect]
     Indication: DEPRESSION
     Route: 048
     Dates: end: 201210

REACTIONS (4)
  - Depression [Unknown]
  - Social avoidant behaviour [Unknown]
  - Decreased interest [Unknown]
  - Drug dose omission [Unknown]
